FAERS Safety Report 7774954-X (Version None)
Quarter: 2011Q3

REPORT INFORMATION
  Report Type: 
  Country: None (occurrence: None)
  Receive Date: 20110923
  Receipt Date: 20110919
  Transmission Date: 20111222
  Serious: Yes (Death)
  Sender: FDA-Public Use
  Company Number: PHHY2011JP75869

PATIENT
  Age: 64 Year
  Sex: Male

DRUGS (9)
  1. FLUOROURACIL [Suspect]
     Indication: OESOPHAGEAL CANCER METASTATIC
     Dosage: 500 MG/DAY
  2. NEDAPLATIN [Suspect]
     Dosage: 90 MG/M2, UNK
  3. ELDISINE [Suspect]
     Dosage: 3 MG/M2, UNK
  4. NEDAPLATIN [Suspect]
     Dosage: 50 MG/M2/DAY
     Route: 041
  5. DOCETAXEL [Suspect]
     Indication: OESOPHAGEAL CANCER METASTATIC
     Dosage: 60 MG/M2, UNK
  6. FLUOROURACIL [Suspect]
     Dosage: 500 MG/M2, UNK
  7. CISPLATIN [Suspect]
     Indication: OESOPHAGEAL CANCER METASTATIC
     Dosage: 60 MG/M2, UNK
  8. NEDAPLATIN [Suspect]
     Indication: OESOPHAGEAL CANCER METASTATIC
     Dosage: 10 MG/DAY
     Route: 041
  9. RADIOTHERAPY [Concomitant]
     Indication: OESOPHAGEAL CANCER METASTATIC

REACTIONS (5)
  - NEOPLASM MALIGNANT [None]
  - MALAISE [None]
  - DECREASED APPETITE [None]
  - INFECTIOUS PERITONITIS [None]
  - THROMBOCYTOPENIA [None]
